FAERS Safety Report 6120364-0 (Version None)
Quarter: 2009Q1

REPORT INFORMATION
  Report Type: 
  Country: None (occurrence: None)
  Receive Date: 20090313
  Receipt Date: 20090313
  Transmission Date: 20090719
  Serious: No
  Sender: FDA-Public Use
  Company Number: None

PATIENT
  Age: 53 Year
  Sex: Female
  Weight: 55.3388 kg

DRUGS (2)
  1. ABILIFY [Suspect]
     Indication: DEPRESSION
     Dosage: 2MG QD PO
     Route: 048
     Dates: start: 20080910, end: 20081010
  2. ABILIFY [Suspect]
     Indication: NO THERAPEUTIC RESPONSE
     Dosage: 2MG QD PO
     Route: 048
     Dates: start: 20080910, end: 20081010

REACTIONS (3)
  - FALL [None]
  - LOSS OF CONTROL OF LEGS [None]
  - MANIA [None]
